FAERS Safety Report 6772661-3 (Version None)
Quarter: 2010Q2

REPORT INFORMATION
  Report Type: 
  Country: None (occurrence: None)
  Receive Date: 20100616
  Receipt Date: 20100113
  Transmission Date: 20101027
  Serious: No
  Sender: FDA-Public Use
  Company Number: US-ASTRAZENECA-2009SE31096

PATIENT
  Sex: Female

DRUGS (1)
  1. PULMICORT FLEXHALER [Suspect]
     Dosage: 3 PUFFS 2 TIMES A DAY
     Route: 055

REACTIONS (2)
  - DEVICE FAILURE [None]
  - INTENTIONAL DRUG MISUSE [None]
